FAERS Safety Report 10035465 (Version 1)
Quarter: 2014Q1

REPORT INFORMATION
  Report Type: Spontaneous
  Country: US (occurrence: US)
  Receive Date: 20140325
  Receipt Date: 20140325
  Transmission Date: 20141002
  Serious: No
  Sender: FDA-Public Use
  Company Number: US-PFIZER INC-2014080886

PATIENT
  Age: 85 Year
  Sex: Male

DRUGS (2)
  1. LYRICA [Suspect]
     Indication: PERONEAL MUSCULAR ATROPHY
     Dosage: 50 MG, 1X/DAY (AT BED TIME NIGHTLY)
  2. LYRICA [Suspect]
     Dosage: (HALF A 50 MG CAPSULE)

REACTIONS (1)
  - Drug ineffective for unapproved indication [Unknown]
